FAERS Safety Report 26063104 (Version 1)
Quarter: 2025Q4

REPORT INFORMATION
  Report Type: Spontaneous
  Country: US (occurrence: None)
  Receive Date: 20251118
  Receipt Date: 20251118
  Transmission Date: 20260118
  Serious: No
  Sender: FDA-CTU
  Company Number: None

PATIENT
  Age: 69 Year
  Sex: Male
  Weight: 87.3 kg

DRUGS (1)
  1. ILLUCCIX [Suspect]
     Active Substance: GALLIUM GA-68 GOZETOTIDE
     Dosage: OTHER FREQUENCY : ONE TIME;
     Route: 042

REACTIONS (3)
  - Syncope [None]
  - Blood pressure decreased [None]
  - Heart rate decreased [None]

NARRATIVE: CASE EVENT DATE: 20251103
